FAERS Safety Report 4665484-2 (Version None)
Quarter: 2005Q2

REPORT INFORMATION
  Report Type: 
  Country: None (occurrence: None)
  Receive Date: 20050519
  Receipt Date: 20040923
  Transmission Date: 20051028
  Serious: Yes (Other)
  Sender: FDA-Public Use
  Company Number: US-BRISTOL-MYERS SQUIBB COMPANY-12710489

PATIENT
  Age: 14 Year
  Sex: Male

DRUGS (3)
  1. CYTOXAN [Suspect]
  2. ONDANSETRON [Concomitant]
     Indication: PREMEDICATION
     Route: 042
  3. DEXAMETHASONE [Concomitant]
     Indication: PREMEDICATION
     Route: 042

REACTIONS (2)
  - NASAL DISCOMFORT [None]
  - THROAT IRRITATION [None]
